FAERS Safety Report 13281371 (Version 1)
Quarter: 2017Q1

REPORT INFORMATION
  Report Type: Spontaneous
  Country: US (occurrence: US)
  Receive Date: 20170228
  Receipt Date: 20170228
  Transmission Date: 20170428
  Serious: Yes (Disabling)
  Sender: FDA-Public Use
  Company Number: None

PATIENT
  Age: 7 Year
  Sex: Male
  Weight: 16.2 kg

DRUGS (3)
  1. MIRALAX [Suspect]
     Active Substance: POLYETHYLENE GLYCOL 3350
     Indication: PRODUCT USED FOR UNKNOWN INDICATION
     Dosage: ?          QUANTITY:1 CAP;?
     Route: 048
     Dates: start: 20120101, end: 20170224
  2. CLODINE [Concomitant]
     Active Substance: TICLOPIDINE HYDROCHLORIDE
  3. METHAPHEDATE [Concomitant]

REACTIONS (5)
  - Abnormal behaviour [None]
  - Attention deficit/hyperactivity disorder [None]
  - Oppositional defiant disorder [None]
  - Developmental delay [None]
  - Speech disorder [None]

NARRATIVE: CASE EVENT DATE: 20120101
